FAERS Safety Report 7513553-1 (Version None)
Quarter: 2011Q2

REPORT INFORMATION
  Report Type: 
  Country: None (occurrence: None)
  Receive Date: 20110531
  Receipt Date: 20110526
  Transmission Date: 20111010
  Serious: Yes (Hospitalization)
  Sender: FDA-Public Use
  Company Number: US-BAYER-201012585NA

PATIENT
  Age: 22 Year
  Sex: Female
  Weight: 69.841 kg

DRUGS (11)
  1. YAZ [Suspect]
     Indication: ORAL CONTRACEPTION
     Dosage: UNK UNK, QD
     Dates: start: 20081209, end: 20090605
  2. ELIDEL [Concomitant]
     Dates: start: 20081114
  3. HYDROXYZINE HCL [Concomitant]
     Indication: OEDEMA
     Route: 048
     Dates: start: 20090223
  4. NAPROXEN [Concomitant]
     Route: 048
     Dates: start: 20090403
  5. METOCLOPRAMIDE [Concomitant]
     Dosage: 10 MG, QID
     Dates: start: 20080301, end: 20080401
  6. BACTRIM DS [Concomitant]
     Indication: URINARY TRACT INFECTION
     Dosage: 800-160MG
     Route: 048
     Dates: start: 20090612
  7. RANITIDINE [Concomitant]
     Dosage: 150 MG, BID
     Dates: start: 20080401, end: 20080901
  8. ORTHO EVRA [Concomitant]
     Dosage: 150-20 MCG
     Dates: start: 20090605
  9. IBUPROFEN [Concomitant]
  10. HYDROXYZINE HCL [Concomitant]
     Indication: PRURITUS
  11. ANTIBIOTICS [Concomitant]

REACTIONS (10)
  - VOMITING [None]
  - ABDOMINAL DISTENSION [None]
  - CHOLELITHIASIS [None]
  - PAIN [None]
  - FAT INTOLERANCE [None]
  - NAUSEA [None]
  - DIZZINESS [None]
  - ABDOMINAL PAIN [None]
  - CHOLECYSTITIS CHRONIC [None]
  - ABDOMINAL PAIN UPPER [None]
